FAERS Safety Report 9639183 (Version 1)
Quarter: 2013Q4

REPORT INFORMATION
  Report Type: Spontaneous
  Country: FR (occurrence: FR)
  Receive Date: 20131022
  Receipt Date: 20131022
  Transmission Date: 20140711
  Serious: Yes (Hospitalization, Other)
  Sender: FDA-Public Use
  Company Number: FR-MERCK-1310FRA006086

PATIENT
  Age: 63 Year
  Sex: Female

DRUGS (1)
  1. EZETROL 10 MG, COMPRIM?S [Suspect]
     Dosage: UNK
     Route: 048
     Dates: start: 2010, end: 20130911

REACTIONS (4)
  - Myositis [Unknown]
  - Myalgia [Unknown]
  - Rhabdomyolysis [Unknown]
  - Blood creatine phosphokinase increased [Unknown]
